FAERS Safety Report 4296068-6 (Version None)
Quarter: 2004Q1

REPORT INFORMATION
  Report Type: 
  Country: None (occurrence: None)
  Receive Date: 20040212
  Receipt Date: 20040204
  Transmission Date: 20041129
  Serious: Yes (Life-Threatening, Disabling)
  Sender: FDA-Public Use
  Company Number: 2004AP00578

PATIENT
  Age: 60 Year
  Sex: Male

DRUGS (1)
  1. XYLOCAINE [Suspect]
     Indication: VENTRICULAR ARRHYTHMIA
     Dosage: 500 MG IVD
     Dates: start: 20040101, end: 20040101

REACTIONS (5)
  - ACCIDENTAL OVERDOSE [None]
  - CARDIO-RESPIRATORY ARREST [None]
  - LOSS OF CONSCIOUSNESS [None]
  - MEDICATION ERROR [None]
  - VENTRICULAR ARRHYTHMIA [None]
